FAERS Safety Report 7555576-2 (Version None)
Quarter: 2011Q2

REPORT INFORMATION
  Report Type: 
  Country: None (occurrence: None)
  Receive Date: 20110617
  Receipt Date: 20060203
  Transmission Date: 20111010
  Serious: Yes (Death, Hospitalization, Other)
  Sender: FDA-Public Use
  Company Number: PHHO2006BR02123

PATIENT
  Age: 74 Year
  Sex: Male
  Weight: 80 kg

DRUGS (4)
  1. NIMODIPINE [Concomitant]
  2. ASPIRIN [Concomitant]
  3. CLONAZEPAM [Concomitant]
  4. DIOVAN [Suspect]
     Indication: HYPERTENSION
     Dosage: 80 MG, QD
     Route: 048
     Dates: start: 20051101

REACTIONS (9)
  - PNEUMONIA [None]
  - INFECTION [None]
  - RESPIRATORY FAILURE [None]
  - WOUND INFECTION [None]
  - DYSPHAGIA [None]
  - CEREBROVASCULAR ACCIDENT [None]
  - DIABETES MELLITUS [None]
  - DYSPNOEA [None]
  - PYREXIA [None]
